FAERS Safety Report 24928649 (Version 1)
Quarter: 2025Q1

REPORT INFORMATION
  Report Type: Report from Study
  Country: US (occurrence: US)
  Receive Date: 20250205
  Receipt Date: 20250205
  Transmission Date: 20250409
  Serious: Yes (Other)
  Sender: ROCHE
  Company Number: US-ROCHE-10000195385

PATIENT
  Age: 52 Year
  Sex: Female
  Weight: 90.72 kg

DRUGS (2)
  1. OCREVUS [Suspect]
     Active Substance: OCRELIZUMAB
     Indication: Relapsing multiple sclerosis
     Route: 040
     Dates: start: 20190621
  2. COPAXONE [Concomitant]
     Active Substance: GLATIRAMER ACETATE

REACTIONS (6)
  - Nasopharyngitis [Unknown]
  - Multiple sclerosis relapse [Unknown]
  - Night sweats [Not Recovered/Not Resolved]
  - Urinary incontinence [Unknown]
  - Stress [Unknown]
  - COVID-19 [Unknown]

NARRATIVE: CASE EVENT DATE: 20240701
